FAERS Safety Report 4400129-8 (Version None)
Quarter: 2004Q2

REPORT INFORMATION
  Report Type: 
  Country: None (occurrence: None)
  Receive Date: 20040618
  Receipt Date: 20040414
  Transmission Date: 20050107
  Serious: No
  Sender: FDA-Public Use
  Company Number: US-JNJFOC-20040403506

PATIENT
  Age: 2 Year
  Sex: Male
  Weight: 16.3295 kg

DRUGS (1)
  1. ORTHO EVRA [Suspect]
     Indication: MEDICATION ERROR
     Dosage: 1 DOSE(S), OTHER
     Route: 050
     Dates: start: 20040414

REACTIONS (2)
  - ACCIDENTAL EXPOSURE [None]
  - HOARSENESS [None]
